FAERS Safety Report 9283878 (Version 2)
Quarter: 2013Q2

REPORT INFORMATION
  Report Type: Spontaneous
  Country: CH (occurrence: CH)
  Receive Date: 20130510
  Receipt Date: 20130625
  Transmission Date: 20140414
  Serious: Yes (Hospitalization)
  Sender: FDA-Public Use
  Company Number: CH-PFIZER INC-2013141732

PATIENT
  Age: 50 Year
  Sex: Female
  Weight: 62 kg

DRUGS (3)
  1. SORTIS [Suspect]
     Dosage: 20 MG DAILY
     Dates: start: 2012
  2. REMERON [Suspect]
     Dosage: 7.5 MG, 1X/DAY
  3. SOMNIUM (DIPHENHYDRAMINE HYDROCHLORIDE/LORAZEPAM) [Suspect]
     Dosage: UNK
     Dates: start: 20130503

REACTIONS (5)
  - Confusional state [Unknown]
  - Disorientation [Unknown]
  - Anterograde amnesia [Unknown]
  - Disturbance in attention [Unknown]
  - Balance disorder [Unknown]
